FAERS Safety Report 11812932 (Version 2)
Quarter: 2015Q4

REPORT INFORMATION
  Report Type: Spontaneous
  Country: US (occurrence: US)
  Receive Date: 20151209
  Receipt Date: 20151223
  Transmission Date: 20160305
  Serious: Yes (Hospitalization)
  Sender: FDA-Public Use
  Company Number: US-BEH-2015056361

PATIENT
  Age: 57 Year
  Sex: Female
  Weight: 45 kg

DRUGS (22)
  1. LEVAQUIN [Concomitant]
     Active Substance: LEVOFLOXACIN
  2. EPIPEN [Concomitant]
     Active Substance: EPINEPHRINE
  3. SPIRIVA [Concomitant]
     Active Substance: TIOTROPIUM BROMIDE MONOHYDRATE
  4. SODIUM CHLORIDE. [Concomitant]
     Active Substance: SODIUM CHLORIDE
  5. OXYGEN. [Concomitant]
     Active Substance: OXYGEN
  6. PREDNISONE. [Concomitant]
     Active Substance: PREDNISONE
  7. FUROSEMIDE. [Concomitant]
     Active Substance: FUROSEMIDE
  8. PRAVASTATIN [Concomitant]
     Active Substance: PRAVASTATIN\PRAVASTATIN SODIUM
  9. LISINOPRIL. [Concomitant]
     Active Substance: LISINOPRIL
  10. ADVAIR HFA [Concomitant]
     Active Substance: FLUTICASONE PROPIONATE\SALMETEROL XINAFOATE
  11. MORPHINE SULFATE. [Suspect]
     Active Substance: MORPHINE SULFATE
  12. FOSAMAX [Concomitant]
     Active Substance: ALENDRONATE SODIUM
  13. VITAMIN D3 [Concomitant]
     Active Substance: CHOLECALCIFEROL
  14. DIPHENHYDRAMINE. [Concomitant]
     Active Substance: DIPHENHYDRAMINE
  15. VITAMIN C [Concomitant]
     Active Substance: ASCORBIC ACID
  16. HEPARIN [Concomitant]
     Active Substance: HEPARIN SODIUM
  17. VITAMIN B12 [Concomitant]
     Active Substance: CYANOCOBALAMIN
  18. PAXIL [Concomitant]
     Active Substance: PAROXETINE HYDROCHLORIDE
  19. ZEMAIRA [Suspect]
     Active Substance: .ALPHA.1-PROTEINASE INHIBITOR HUMAN
     Indication: ALPHA-1 ANTI-TRYPSIN DEFICIENCY
     Route: 042
  20. ZEMAIRA [Suspect]
     Active Substance: .ALPHA.1-PROTEINASE INHIBITOR HUMAN
     Indication: EMPHYSEMA
     Route: 042
  21. NOARMAL SALINE [Concomitant]
  22. VENTOLIN HFA [Concomitant]
     Active Substance: ALBUTEROL SULFATE

REACTIONS (3)
  - Dyspnoea [Unknown]
  - Intestinal obstruction [Unknown]
  - Pneumonia [Unknown]

NARRATIVE: CASE EVENT DATE: 20151107
